FAERS Safety Report 18201686 (Version 2)
Quarter: 2020Q3

REPORT INFORMATION
  Report Type: Spontaneous
  Country: US (occurrence: US)
  Receive Date: 20200827
  Receipt Date: 20200908
  Transmission Date: 20201103
  Serious: Yes (Death, Other)
  Sender: FDA-Public Use
  Company Number: US-PFIZER INC-2020328784

PATIENT
  Age: 15 Year
  Sex: Male

DRUGS (8)
  1. SUCCINYLCHOLINE CHLORIDE. [Suspect]
     Active Substance: SUCCINYLCHOLINE CHLORIDE
     Dosage: 40 MG (ADDITIONAL)
  2. THIOPENTAL [Suspect]
     Active Substance: THIOPENTAL
     Indication: ANAESTHESIA PROCEDURE
     Dosage: 300 MG
  3. NITROUS OXIDE. [Suspect]
     Active Substance: NITROUS OXIDE
     Indication: ANAESTHESIA PROCEDURE
     Dosage: UNK (OXYGEN AND NITROUS OXIDE IN EQUAL PARTS)
  4. DANTROLENE. [Concomitant]
     Active Substance: DANTROLENE SODIUM
     Dosage: UNK
  5. OXYGEN. [Suspect]
     Active Substance: OXYGEN
     Indication: ANAESTHESIA PROCEDURE
     Dosage: UNK (OXYGEN AND NITROUS OXIDE IN EQUAL PARTS)
  6. ATROPINE. [Concomitant]
     Active Substance: ATROPINE
     Indication: BRADYCARDIA
     Dosage: 0.4 MG
  7. SUCCINYLCHOLINE CHLORIDE. [Suspect]
     Active Substance: SUCCINYLCHOLINE CHLORIDE
     Indication: ANAESTHESIA PROCEDURE
     Dosage: 80 MG
  8. ENFLURANE. [Suspect]
     Active Substance: ENFLURANE
     Indication: ANAESTHESIA PROCEDURE
     Dosage: UNK

REACTIONS (4)
  - Haemolysis [Fatal]
  - Cardiac arrest [Fatal]
  - Hyperkalaemia [Fatal]
  - Hyperthermia malignant [Fatal]
